FAERS Safety Report 7773493-X (Version None)
Quarter: 2011Q3

REPORT INFORMATION
  Report Type: 
  Country: None (occurrence: None)
  Receive Date: 20110922
  Receipt Date: 20110914
  Transmission Date: 20111222
  Serious: Yes (Hospitalization)
  Sender: FDA-Public Use
  Company Number: JP-GENENTECH-320363

PATIENT
  Age: 68 Year
  Sex: Male

DRUGS (11)
  1. GRTPA [Suspect]
     Indication: EMBOLIC STROKE
     Dosage: 40.6 ML, UNK
     Route: 042
     Dates: start: 20110202, end: 20110202
  2. RADICUT [Suspect]
     Dosage: 30 MG, UNK
     Route: 041
     Dates: start: 20110213, end: 20110213
  3. WARFARIN SODIUM [Concomitant]
     Indication: PRODUCT USED FOR UNKNOWN INDICATION
     Dosage: 5 MG, UNK
     Route: 048
     Dates: start: 20110204, end: 20110207
  4. WARFARIN SODIUM [Concomitant]
     Dosage: 1.75 MG, UNK
     Route: 048
  5. RADICUT [Suspect]
     Indication: EMBOLIC STROKE
     Dosage: 30 MG, UNK
     Route: 041
     Dates: start: 20110202, end: 20110202
  6. FAMOTIDINE [Concomitant]
     Indication: PRODUCT USED FOR UNKNOWN INDICATION
     Dosage: 40 MG, UNK
     Route: 048
     Dates: start: 20110204, end: 20110207
  7. RADICUT [Suspect]
     Dosage: 60 MG, UNK
     Route: 041
     Dates: start: 20110203, end: 20110212
  8. HEPARIN SODIUM [Concomitant]
     Indication: PRODUCT USED FOR UNKNOWN INDICATION
     Dosage: UNK
     Route: 041
     Dates: start: 20110203, end: 20110207
  9. WARFARIN SODIUM [Concomitant]
     Dosage: 2 MG, UNK
     Route: 048
     Dates: end: 20110212
  10. FAMOTIDINE [Concomitant]
     Dosage: 20 MG, UNK
     Route: 048
     Dates: start: 20110208, end: 20110222
  11. MUCOSTA [Concomitant]
     Indication: PRODUCT USED FOR UNKNOWN INDICATION
     Dosage: 300 MG, UNK
     Route: 048
     Dates: start: 20110213, end: 20110223

REACTIONS (1)
  - CHOLECYSTITIS [None]
